FAERS Safety Report 5574161-5 (Version None)
Quarter: 2007Q4

REPORT INFORMATION
  Report Type: 
  Country: None (occurrence: None)
  Receive Date: 20071221
  Receipt Date: 20071213
  Transmission Date: 20080405
  Serious: No
  Sender: FDA-Public Use
  Company Number: US021933

PATIENT
  Age: 51 Year
  Sex: Male
  Weight: 113.3993 kg

DRUGS (2)
  1. FENTORA [Suspect]
     Indication: BACK INJURY
     Dosage: 600 UG QID BUCCAL
     Route: 002
     Dates: start: 20070701
  2. FENTANYL TRANSDERMAL SYSTEM [Concomitant]

REACTIONS (5)
  - APPLICATION SITE BLEEDING [None]
  - APPLICATION SITE IRRITATION [None]
  - MEDICATION ERROR [None]
  - NO THERAPEUTIC RESPONSE [None]
  - PHARMACEUTICAL PRODUCT COMPLAINT [None]
